FAERS Safety Report 14270190 (Version 1)
Quarter: 2017Q4

REPORT INFORMATION
  Report Type: Spontaneous
  Country: JP (occurrence: JP)
  Receive Date: 20171211
  Receipt Date: 20171211
  Transmission Date: 20180321
  Serious: Yes (Hospitalization, Other)
  Sender: FDA-Public Use
  Company Number: JP-OTSUKA-007367

PATIENT
  Age: 37 Year
  Sex: Female
  Weight: 50 kg

DRUGS (31)
  1. ABILIFY [Suspect]
     Active Substance: ARIPIPRAZOLE
     Indication: DEPRESSIVE SYMPTOM
     Dosage: UNK
     Route: 048
     Dates: start: 20060913, end: 20061010
  2. ABILIFY [Suspect]
     Active Substance: ARIPIPRAZOLE
     Dosage: UNK
     Route: 048
     Dates: start: 20070801, end: 20091208
  3. ABILIFY [Suspect]
     Active Substance: ARIPIPRAZOLE
     Dosage: UNK
     Route: 048
     Dates: start: 20100107, end: 20100720
  4. SULPIRIDE [Suspect]
     Active Substance: SULPIRIDE
     Indication: AFFECT LABILITY
     Dosage: 50 MG, TID
     Route: 048
     Dates: start: 2006
  5. SULPIRIDE [Suspect]
     Active Substance: SULPIRIDE
     Indication: PERSONALITY DISORDER
  6. FLUVOXAMINE [Suspect]
     Active Substance: FLUVOXAMINE
     Indication: DEPRESSIVE SYMPTOM
     Dosage: 25 MG, BID
     Route: 048
     Dates: start: 2006
  7. MIRADOL [Suspect]
     Active Substance: SULPIRIDE
     Indication: AFFECT LABILITY
     Dosage: 50 MG, TID
     Route: 048
  8. LULLAN [Suspect]
     Active Substance: PEROSPIRONE HYDROCHLORIDE
     Indication: DEPRESSIVE SYMPTOM
     Dosage: UNK
     Route: 048
     Dates: start: 2006
  9. ABILIFY [Suspect]
     Active Substance: ARIPIPRAZOLE
     Indication: PERSONALITY DISORDER
     Dosage: UNK
     Route: 048
     Dates: start: 20061011, end: 20061024
  10. ABILIFY [Suspect]
     Active Substance: ARIPIPRAZOLE
     Indication: SCHIZOPHRENIA
     Dosage: UNK
     Route: 048
     Dates: start: 20070328, end: 20070731
  11. DEPROMEL [Suspect]
     Active Substance: FLUVOXAMINE
     Indication: PERSONALITY DISORDER
  12. MIRADOL [Suspect]
     Active Substance: SULPIRIDE
     Indication: PERSONALITY DISORDER
  13. LULLAN [Suspect]
     Active Substance: PEROSPIRONE HYDROCHLORIDE
     Indication: PERSONALITY DISORDER
  14. SEROQUEL [Suspect]
     Active Substance: QUETIAPINE FUMARATE
     Indication: PERSONALITY DISORDER
  15. ABILIFY [Suspect]
     Active Substance: ARIPIPRAZOLE
     Indication: SUICIDAL IDEATION
     Dosage: UNK
     Route: 048
     Dates: start: 20061108, end: 20070327
  16. MIRADOL [Suspect]
     Active Substance: SULPIRIDE
     Indication: DEPRESSIVE SYMPTOM
     Dosage: UNK
     Route: 048
     Dates: start: 2006
  17. SEROQUEL [Suspect]
     Active Substance: QUETIAPINE FUMARATE
     Indication: AFFECT LABILITY
     Dosage: 25 MG, QD
     Route: 048
  18. ABILIFY [Suspect]
     Active Substance: ARIPIPRAZOLE
     Indication: AFFECT LABILITY
     Dosage: 21 MG, QD
     Route: 048
  19. ABILIFY [Suspect]
     Active Substance: ARIPIPRAZOLE
     Dosage: UNK
  20. SULPIRIDE [Suspect]
     Active Substance: SULPIRIDE
     Indication: DEPRESSIVE SYMPTOM
  21. DEPROMEL [Suspect]
     Active Substance: FLUVOXAMINE
     Indication: AFFECT LABILITY
     Dosage: 25 MG, BID
     Route: 048
  22. LULLAN [Suspect]
     Active Substance: PEROSPIRONE HYDROCHLORIDE
     Indication: AFFECT LABILITY
     Dosage: 8 MG, QD
     Route: 048
  23. BENZALIN [Suspect]
     Active Substance: NITRAZEPAM
     Dosage: UNK
     Route: 048
     Dates: start: 2006
  24. QUETIAPINE. [Suspect]
     Active Substance: QUETIAPINE
     Indication: DEPRESSIVE SYMPTOM
  25. FLUVOXAMINE [Suspect]
     Active Substance: FLUVOXAMINE
     Indication: AFFECT LABILITY
  26. SEROQUEL [Suspect]
     Active Substance: QUETIAPINE FUMARATE
     Indication: DEPRESSIVE SYMPTOM
     Dosage: UNK
     Route: 048
     Dates: start: 2006
  27. BENZALIN [Suspect]
     Active Substance: NITRAZEPAM
     Indication: INSOMNIA
     Dosage: 5 MG, QD
     Route: 048
  28. QUETIAPINE. [Suspect]
     Active Substance: QUETIAPINE
     Indication: AFFECT LABILITY
     Dosage: 25 MG, QD
     Route: 048
     Dates: start: 2006
  29. QUETIAPINE. [Suspect]
     Active Substance: QUETIAPINE
     Indication: PERSONALITY DISORDER
  30. FLUVOXAMINE [Suspect]
     Active Substance: FLUVOXAMINE
     Indication: PERSONALITY DISORDER
  31. DEPROMEL [Suspect]
     Active Substance: FLUVOXAMINE
     Indication: DEPRESSIVE SYMPTOM
     Dosage: UNK
     Route: 065
     Dates: start: 2006

REACTIONS (4)
  - Exposure during pregnancy [Unknown]
  - Maternal exposure during pregnancy [Recovered/Resolved]
  - Abortion spontaneous [Recovered/Resolved]
  - Normal newborn [Unknown]

NARRATIVE: CASE EVENT DATE: 20090808
